FAERS Safety Report 21099196 (Version 1)
Quarter: 2022Q3

REPORT INFORMATION
  Report Type: Spontaneous
  Country: CZ (occurrence: CZ)
  Receive Date: 20220719
  Receipt Date: 20220719
  Transmission Date: 20221027
  Serious: Yes (Other)
  Sender: FDA-Public Use
  Company Number: CZ-BAYER-2022P007258

PATIENT
  Sex: Female

DRUGS (6)
  1. ANTIHEMOPHILIC FACTOR, HUMAN RECOMBINANT [Suspect]
     Active Substance: ANTIHEMOPHILIC FACTOR, HUMAN RECOMBINANT
     Indication: Coagulation test abnormal
     Dosage: UNK
  2. VON WILLEBRAND FACTOR HUMAN [Concomitant]
     Active Substance: VON WILLEBRAND FACTOR HUMAN
  3. COAGULATION FACTOR X [Concomitant]
  4. FIBRINOGEN [Concomitant]
     Active Substance: FIBRINOGEN HUMAN
  5. HUMAN PLASMA [Concomitant]
     Active Substance: HUMAN PLASMA
  6. FACTOR XIII CONCENTRATE (HUMAN) [Concomitant]
     Active Substance: FACTOR XIII CONCENTRATE (HUMAN)

REACTIONS (1)
  - Post procedural haemorrhage [Recovering/Resolving]
